FAERS Safety Report 23258896 (Version 1)
Quarter: 2023Q4

REPORT INFORMATION
  Report Type: Spontaneous
  Country: ID (occurrence: ID)
  Receive Date: 20231204
  Receipt Date: 20231204
  Transmission Date: 20240110
  Serious: Yes (Hospitalization, Other)
  Sender: FDA-Public Use
  Company Number: ID-PFIZER INC-PV202300139536

PATIENT
  Age: 56 Year
  Sex: Female

DRUGS (4)
  1. IBRANCE [Suspect]
     Active Substance: PALBOCICLIB
     Indication: Breast cancer
     Dosage: 1X/DAY FOR 21 DAYS TAKE DRUG; 7 DAYS OFF TREATMENT
     Route: 048
     Dates: start: 202305
  2. IBRANCE [Suspect]
     Active Substance: PALBOCICLIB
     Dosage: 75 MG, 1X/DAY (2 (TWO) WEEKS OFF)
     Route: 048
  3. LETROZOLE [Suspect]
     Active Substance: LETROZOLE
     Indication: Breast cancer
     Dosage: 2.5 MG, 1X/DAY
     Route: 048
  4. FASLODEX [Suspect]
     Active Substance: FULVESTRANT
     Indication: Breast cancer
     Dosage: UNK, MONTHLY

REACTIONS (7)
  - White blood cell count decreased [Recovered/Resolved]
  - Leukopenia [Recovered/Resolved]
  - Breast mass [Unknown]
  - Pruritus [Recovered/Resolved]
  - Skin disorder [Recovered/Resolved]
  - Rash [Recovered/Resolved]
  - Skin exfoliation [Recovered/Resolved]

NARRATIVE: CASE EVENT DATE: 20230901
